FAERS Safety Report 24717548 (Version 1)
Quarter: 2024Q4

REPORT INFORMATION
  Report Type: Spontaneous
  Country: CN (occurrence: CN)
  Receive Date: 20241210
  Receipt Date: 20241210
  Transmission Date: 20250115
  Serious: Yes (Hospitalization)
  Sender: ELI LILLY AND COMPANY
  Company Number: CN-Merck Healthcare KGaA-2024063465

PATIENT
  Age: 76 Year
  Sex: Male
  Weight: 70 kg

DRUGS (2)
  1. ERBITUX [Suspect]
     Active Substance: CETUXIMAB
     Indication: Skin cancer
     Dosage: 500 MG, OTHER, 1 EVERY 21 DAY
     Route: 041
     Dates: start: 20241123, end: 20241123
  2. SINTILIMAB [Suspect]
     Active Substance: SINTILIMAB
     Indication: Skin cancer
     Dosage: 20 ML, OTHER, EVERY 21 DAYS
     Route: 041
     Dates: start: 20241124, end: 20241124

REACTIONS (3)
  - Haemoglobin decreased [Unknown]
  - Platelet count decreased [Unknown]
  - Off label use [Unknown]

NARRATIVE: CASE EVENT DATE: 20241126
